FAERS Safety Report 5585581-7 (Version None)
Quarter: 2008Q1

REPORT INFORMATION
  Report Type: 
  Country: None (occurrence: None)
  Receive Date: 20080109
  Receipt Date: 20080103
  Transmission Date: 20080703
  Serious: Yes (Other)
  Sender: FDA-Public Use
  Company Number: B0463295A

PATIENT
  Age: 42 Year
  Sex: Male

DRUGS (4)
  1. SEROXAT [Suspect]
     Route: 048
     Dates: start: 19990127
  2. SEROXAT [Suspect]
     Route: 048
  3. DIAZEPAM [Concomitant]
  4. AMITRIPTYLINE HCL [Concomitant]

REACTIONS (14)
  - AGGRESSION [None]
  - ANGER [None]
  - DEPRESSIVE SYMPTOM [None]
  - DIZZINESS [None]
  - DRUG WITHDRAWAL SYNDROME [None]
  - FATIGUE [None]
  - FEELING ABNORMAL [None]
  - HYPERHIDROSIS [None]
  - NAUSEA [None]
  - NIGHTMARE [None]
  - PARAESTHESIA [None]
  - PHYSICAL ASSAULT [None]
  - SLEEP DISORDER [None]
  - TREMOR [None]
